FAERS Safety Report 24592884 (Version 2)
Quarter: 2024Q4

REPORT INFORMATION
  Report Type: Spontaneous
  Country: SG (occurrence: SG)
  Receive Date: 20241108
  Receipt Date: 20241113
  Transmission Date: 20250114
  Serious: Yes (Hospitalization, Disabling, Other)
  Sender: USV PRIVATE LIMITED
  Company Number: SG-USV-002985

PATIENT
  Age: 43 Year
  Sex: Female

DRUGS (3)
  1. ZOLEDRONIC ACID [Suspect]
     Active Substance: ZOLEDRONIC ACID
     Indication: Breast cancer metastatic
     Dosage: ZOLEDRONIC ACID IS 4 MG EVERY 2 MONTHS FROM 2012 TO JANUARY 2023
     Dates: start: 2012, end: 202301
  2. ZOLEDRONIC ACID [Suspect]
     Active Substance: ZOLEDRONIC ACID
     Indication: Breast cancer metastatic
     Dosage: 4 MG EVERY 3 MONTHS FROM JANUARY 2023 ONWARDS
     Dates: start: 202301, end: 2023
  3. ZOLEDRONIC ACID [Suspect]
     Active Substance: ZOLEDRONIC ACID
     Indication: Breast cancer female
     Dosage: ZOLEDRONIC ACID IS 4 MG EVERY 2 MONTHS FROM 2012 TO JANUARY 2023
     Dates: start: 2012, end: 202301

REACTIONS (3)
  - Bone disorder [Recovered/Resolved]
  - Foot fracture [Recovered/Resolved]
  - Femur fracture [Recovered/Resolved]

NARRATIVE: CASE EVENT DATE: 20190201
